FAERS Safety Report 22063417 (Version 2)
Quarter: 2023Q2

REPORT INFORMATION
  Report Type: Spontaneous
  Country: US (occurrence: US)
  Receive Date: 20230306
  Receipt Date: 20230501
  Transmission Date: 20230722
  Serious: Yes (Life-Threatening, Hospitalization)
  Sender: FDA-Public Use
  Company Number: US-BAUSCH-BL-2023-003358

PATIENT
  Age: 62 Year
  Sex: Female
  Weight: 66.7 kg

DRUGS (9)
  1. MINOCYCLINE [Suspect]
     Active Substance: MINOCYCLINE HYDROCHLORIDE
     Indication: Alopecia scarring
     Dosage: STARTED APPROXIMATELY 16/JAN/2022, SELF-DISCONTINUED THREE DAYS BEFORE PRESENTATION
     Route: 048
     Dates: end: 20220205
  2. DEXAMETHASONE [Suspect]
     Active Substance: DEXAMETHASONE
     Indication: Evidence based treatment
     Route: 065
  3. CEFTRIAXONE [Concomitant]
     Active Substance: CEFTRIAXONE
     Indication: Evidence based treatment
     Dosage: 08/FEB-09/FEB
  4. AMPICILLIN [Concomitant]
     Active Substance: AMPICILLIN
     Indication: Evidence based treatment
     Dosage: 08/FEB-09/FEB
     Route: 042
  5. VANCOMYCIN [Concomitant]
     Active Substance: VANCOMYCIN
     Indication: Evidence based treatment
     Dosage: 08/FEB-09/FEB
  6. ACYCLOVIR [Concomitant]
     Active Substance: ACYCLOVIR
     Indication: Evidence based treatment
     Dosage: 08/FEB-09/FEB
     Route: 042
  7. CLOBETASOL [Concomitant]
     Active Substance: CLOBETASOL
     Indication: Interstitial granulomatous dermatitis
     Dosage: APPLY TOPICALLY TO AFFECTED AREA
     Route: 061
  8. FLAXSEED [Concomitant]
     Active Substance: FLAX SEED
     Indication: Product used for unknown indication
     Dosage: SUPPLEMENT DAILY
     Route: 048
  9. VITAMINS NOS [Concomitant]
     Active Substance: VITAMINS
     Dosage: MV-MIN/FOLIC/VIT K/LYCOP (ORAL DAILY)
     Route: 048

REACTIONS (3)
  - Drug reaction with eosinophilia and systemic symptoms [Recovered/Resolved]
  - Meningitis aseptic [Recovered/Resolved]
  - Type IV hypersensitivity reaction [Recovered/Resolved]
